FAERS Safety Report 8061311-4 (Version None)
Quarter: 2012Q1

REPORT INFORMATION
  Report Type: 
  Country: None (occurrence: None)
  Receive Date: 20120120
  Receipt Date: 20110906
  Transmission Date: 20120608
  Serious: No
  Sender: FDA-Public Use
  Company Number: US-ALLERGAN-1111837US

PATIENT
  Age: 59 Year
  Sex: Female

DRUGS (2)
  1. RESTASIS [Suspect]
     Indication: DRY EYE
     Dosage: 1 GTT, BID
     Route: 047
     Dates: start: 20110618
  2. WETTING DROPS [Concomitant]
     Indication: DRY EYE

REACTIONS (5)
  - FATIGUE [None]
  - EYE IRRITATION [None]
  - SNEEZING [None]
  - THERAPEUTIC RESPONSE UNEXPECTED [None]
  - OCULAR HYPERAEMIA [None]
